FAERS Safety Report 9691046 (Version 3)
Quarter: 2013Q4

REPORT INFORMATION
  Report Type: Report from Study
  Country: US (occurrence: US)
  Receive Date: 20131115
  Receipt Date: 20131126
  Transmission Date: 20140711
  Serious: Yes (Hospitalization)
  Sender: FDA-Public Use
  Company Number: US-ACTELION-A-NJ2013-87984

PATIENT
  Age: 49 Year
  Sex: Male

DRUGS (4)
  1. TRACLEER [Suspect]
     Indication: PULMONARY ARTERIAL HYPERTENSION
     Dosage: UNK
     Route: 048
     Dates: start: 2010
  2. EPZICOM [Suspect]
     Dosage: UNK
  3. LASIX [Suspect]
  4. ADCIRCA [Concomitant]

REACTIONS (6)
  - Blood potassium decreased [Unknown]
  - Blood sodium decreased [Recovering/Resolving]
  - Adverse drug reaction [Recovering/Resolving]
  - Vomiting [Recovering/Resolving]
  - Cardiac failure congestive [Recovering/Resolving]
  - Fluid retention [Recovering/Resolving]
